FAERS Safety Report 5209740-8 (Version None)
Quarter: 2006Q4

REPORT INFORMATION
  Report Type: 
  Country: None (occurrence: None)
  Receive Date: 20061116
  Receipt Date: 20060411
  Transmission Date: 20070319
  Serious: Yes (Other)
  Sender: FDA-Public Use
  Company Number: 26691

PATIENT
  Sex: Female
  Weight: 61.2356 kg

DRUGS (4)
  1. CISPLATIN [Suspect]
     Indication: OESOPHAGEAL CARCINOMA
     Dosage: 78MG, DAY 8 AND DAY 29 OF 6 W
     Dates: start: 20060228
  2. FLUOROURACIL [Concomitant]
  3. LEUCOVORIN CALCIUM [Concomitant]
  4. TAXOL [Concomitant]

REACTIONS (3)
  - CONFUSIONAL STATE [None]
  - DYSPNOEA [None]
  - FLUSHING [None]
